FAERS Safety Report 6590590-5 (Version None)
Quarter: 2010Q1

REPORT INFORMATION
  Report Type: 
  Country: None (occurrence: None)
  Receive Date: 20100219
  Receipt Date: 20100210
  Transmission Date: 20100710
  Serious: Yes (Other)
  Sender: FDA-Public Use
  Company Number: CA-JNJFOC-20100205854

PATIENT
  Sex: Male
  Weight: 118 kg

DRUGS (10)
  1. REMICADE [Suspect]
     Indication: CROHN'S DISEASE
     Route: 042
  2. REMICADE [Suspect]
     Dosage: INFUSION # 13
     Route: 042
  3. SYMBICORT [Concomitant]
     Route: 055
  4. VENTOLIN [Concomitant]
     Dosage: PRN
     Route: 055
  5. IMURAN [Concomitant]
     Route: 048
  6. CIPRO [Concomitant]
  7. FLAGYL [Concomitant]
  8. ATENOLOL [Concomitant]
  9. PLAVIX [Concomitant]
  10. EZETROL [Concomitant]

REACTIONS (3)
  - ASTHMA [None]
  - EAR INFECTION [None]
  - SINUSITIS [None]
